FAERS Safety Report 9830085 (Version 1)
Quarter: 2014Q1

REPORT INFORMATION
  Report Type: Spontaneous
  Country: US (occurrence: US)
  Receive Date: 20140120
  Receipt Date: 20140120
  Transmission Date: 20141002
  Serious: No
  Sender: FDA-Public Use
  Company Number: US-009507513-1401USA004981

PATIENT
  Age: 40 Year
  Sex: Female

DRUGS (5)
  1. CLARITIN-D-24 [Suspect]
     Indication: NASAL CONGESTION
     Dosage: UNK, UNKNOWN
     Route: 048
  2. CLARITIN-D-24 [Suspect]
     Indication: PARANASAL SINUS HYPERSECRETION
  3. CLARITIN-D-24 [Suspect]
     Indication: HYPERSENSITIVITY
  4. CLARITIN-D-24 [Suspect]
     Indication: RHINORRHOEA
  5. CLARITIN-D-24 [Suspect]
     Indication: SNEEZING

REACTIONS (2)
  - Restlessness [Unknown]
  - Feeling jittery [Unknown]
